FAERS Safety Report 4818467-3 (Version None)
Quarter: 2005Q4

REPORT INFORMATION
  Report Type: 
  Country: None (occurrence: None)
  Receive Date: 20051031
  Receipt Date: 20051031
  Transmission Date: 20060501
  Serious: Yes (Hospitalization)
  Sender: FDA-Public Use
  Company Number: None

PATIENT
  Age: 58 Year
  Sex: Male
  Weight: 74.3899 kg

DRUGS (1)
  1. PHENYTOIN SODIUM CAP [Suspect]
     Indication: CONVULSION
     Dosage: 400 MG TWICE DAILY PO
     Route: 048
     Dates: start: 20050909, end: 20050911

REACTIONS (6)
  - BALANCE DISORDER [None]
  - EYE HAEMORRHAGE [None]
  - FALL [None]
  - HEAD INJURY [None]
  - NAUSEA [None]
  - TINNITUS [None]
